FAERS Safety Report 7519722-9 (Version None)
Quarter: 2011Q2

REPORT INFORMATION
  Report Type: 
  Country: None (occurrence: None)
  Receive Date: 20110602
  Receipt Date: 20110531
  Transmission Date: 20111010
  Serious: Yes (Other)
  Sender: FDA-Public Use
  Company Number: US-PFIZER INC-2011118179

PATIENT
  Sex: Female

DRUGS (1)
  1. CORTEF [Suspect]
     Dosage: 5 MG, 4X/DAY
     Route: 048
     Dates: start: 20081201

REACTIONS (3)
  - PALPITATIONS [None]
  - SWELLING FACE [None]
  - NERVOUS SYSTEM DISORDER [None]
